FAERS Safety Report 19075576 (Version 3)
Quarter: 2021Q2

REPORT INFORMATION
  Report Type: Report from Study
  Country: CN (occurrence: CN)
  Receive Date: 20210331
  Receipt Date: 20210506
  Transmission Date: 20210717
  Serious: Yes (Hospitalization)
  Sender: FDA-Public Use
  Company Number: CN-JIANGSU HENGRUI MEDICINE CO., LTD.-2108629

PATIENT
  Age: 57 Year
  Sex: Female
  Weight: 59.7 kg

DRUGS (8)
  1. DOCETAXEL INJECTION USP, 20 MG/0.5 ML, SINGLE?DOSE VIAL, TWO?VIAL FORM [Suspect]
     Active Substance: DOCETAXEL
     Indication: BREAST CANCER
     Route: 041
     Dates: start: 20201203, end: 20210303
  2. IRBESARTAN TABLETS [Concomitant]
     Active Substance: IRBESARTAN
     Route: 048
     Dates: start: 20201231
  3. MECOBALAMIN TABLETS [Concomitant]
     Active Substance: METHYLCOBALAMIN
     Route: 048
     Dates: start: 20210303, end: 20210315
  4. METOPROLOL SUSTAIND?RELEASE TABLETS [Concomitant]
     Route: 048
     Dates: start: 20201218
  5. PYROTINIB MALEATE. [Suspect]
     Active Substance: PYROTINIB MALEATE
     Route: 048
     Dates: start: 20201209, end: 20210317
  6. PREGABALIN. [Concomitant]
     Active Substance: PREGABALIN
     Route: 048
     Dates: start: 20210303, end: 20210315
  7. TRASTUZUMAB INJECTION [Suspect]
     Active Substance: TRASTUZUMAB
     Route: 041
     Dates: start: 20201203, end: 20210303
  8. COMPOUND VITAMIN B TABLETS [Concomitant]
     Route: 048
     Dates: start: 20210303, end: 20210315

REACTIONS (1)
  - Gastroenteritis [Recovered/Resolved]

NARRATIVE: CASE EVENT DATE: 20210319
